FAERS Safety Report 5100942-8 (Version None)
Quarter: 2006Q3

REPORT INFORMATION
  Report Type: 
  Country: None (occurrence: None)
  Receive Date: 20060731
  Receipt Date: 20060619
  Transmission Date: 20061208
  Serious: No
  Sender: FDA-Public Use
  Company Number: 2006PV015895

PATIENT
  Age: 57 Year
  Sex: Female
  Weight: 64.4108 kg

DRUGS (14)
  1. BYETTA [Suspect]
     Indication: DIABETES MELLITUS NON-INSULIN-DEPENDENT
     Dosage: 5 MCG;BID;SC
     Route: 058
     Dates: start: 20060520
  2. CRESTOR [Concomitant]
  3. GEMFIBROZIL [Concomitant]
  4. GLYBURIDE [Concomitant]
  5. GLUCOPHAGE [Concomitant]
  6. AVANDIA [Concomitant]
  7. LISINOPRIL [Concomitant]
  8. MAXZIDE [Concomitant]
  9. FLONASE [Concomitant]
  10. VITAMIN B COMPLEX CAP [Concomitant]
  11. PROTONIX [Concomitant]
  12. FARGON [Concomitant]
  13. METAMUCIL-2 [Concomitant]
  14. ADVIL [Concomitant]

REACTIONS (9)
  - ANOREXIA [None]
  - ERUCTATION [None]
  - HANGOVER [None]
  - HEADACHE [None]
  - IRRITABILITY [None]
  - MENTAL IMPAIRMENT [None]
  - NAUSEA [None]
  - VOMITING [None]
  - WEIGHT DECREASED [None]
